FAERS Safety Report 8544453-6 (Version None)
Quarter: 2012Q3

REPORT INFORMATION
  Report Type: 
  Country: None (occurrence: None)
  Receive Date: 20120719
  Receipt Date: 20120719
  Transmission Date: 20120928
  Serious: Yes (Other)
  Sender: FDA-Public Use
  Company Number: None

PATIENT
  Age: 50 Year
  Sex: Female

DRUGS (1)
  1. ENBREL [Suspect]
     Indication: PSORIATIC ARTHROPATHY
     Dosage: 50MG EVERY WEEK SQ
     Route: 058
     Dates: start: 20120403, end: 20120719

REACTIONS (2)
  - SINUSITIS [None]
  - ARTHRITIS [None]
